FAERS Safety Report 5713617-9 (Version None)
Quarter: 2008Q2

REPORT INFORMATION
  Report Type: 
  Country: None (occurrence: None)
  Receive Date: 20080418
  Receipt Date: 20080407
  Transmission Date: 20081010
  Serious: Yes (Hospitalization)
  Sender: FDA-Public Use
  Company Number: 2008-02305

PATIENT
  Age: 39 Year
  Sex: Female

DRUGS (2)
  1. FIORINAL W/CODEINE [Suspect]
     Indication: INTENTIONAL DRUG MISUSE
     Dosage: 16 - 24 TABLETS DAILY X 3 WEEKS, ORAL
     Route: 048
  2. IBUPROFEN [Suspect]
     Indication: INTENTIONAL DRUG MISUSE
     Dosage: 16 - 24 TABLETS DAILY X 3 WEEKS, ORAL
     Route: 048

REACTIONS (2)
  - GASTRIC ULCER PERFORATION [None]
  - INTENTIONAL DRUG MISUSE [None]
